FAERS Safety Report 24238244 (Version 1)
Quarter: 2024Q3

REPORT INFORMATION
  Report Type: Spontaneous
  Country: US (occurrence: None)
  Receive Date: 20240821
  Receipt Date: 20240821
  Transmission Date: 20241017
  Serious: Yes (Life-Threatening, Hospitalization, Disabling)
  Sender: Public
  Company Number: None

PATIENT
  Age: 54 Year
  Sex: Female
  Weight: 60.75 kg

DRUGS (6)
  1. PROMACTA [Suspect]
     Active Substance: ELTROMBOPAG OLAMINE
     Indication: Immune thrombocytopenia
     Dates: start: 20231202, end: 20240710
  2. ELIQUIS [Concomitant]
     Active Substance: APIXABAN
  3. KEPPRA [Concomitant]
     Active Substance: LEVETIRACETAM
  4. CHOLESTYRAMINE [Concomitant]
     Active Substance: CHOLESTYRAMINE
  5. MULTIVATAMINS [Concomitant]
  6. VITAMIN D3 [Concomitant]
     Active Substance: CHOLECALCIFEROL

REACTIONS (11)
  - Loss of consciousness [None]
  - Respiratory arrest [None]
  - Seizure [None]
  - Cerebral venous thrombosis [None]
  - Cerebral infarction [None]
  - Epistaxis [None]
  - Monoplegia [None]
  - Aphasia [None]
  - Platelet count increased [None]
  - Disturbance in attention [None]
  - Flashback [None]

NARRATIVE: CASE EVENT DATE: 20240709
